FAERS Safety Report 18585548 (Version 1)
Quarter: 2020Q4

REPORT INFORMATION
  Report Type: Spontaneous
  Country: US (occurrence: US)
  Receive Date: 20201207
  Receipt Date: 20201207
  Transmission Date: 20210114
  Serious: No
  Sender: FDA-Public Use
  Company Number: US-PFIZER INC-2019298531

PATIENT
  Age: 72 Year
  Sex: Female
  Weight: 55.33 kg

DRUGS (1)
  1. PREMARIN [Suspect]
     Active Substance: ESTROGENS, CONJUGATED
     Dosage: UNK

REACTIONS (3)
  - Memory impairment [Unknown]
  - Product prescribing error [Unknown]
  - Weight increased [Unknown]
